FAERS Safety Report 17398986 (Version 6)
Quarter: 2020Q2

REPORT INFORMATION
  Report Type: Spontaneous
  Country: CA (occurrence: CA)
  Receive Date: 20200210
  Receipt Date: 20200610
  Transmission Date: 20200713
  Serious: Yes (Hospitalization)
  Sender: FDA-Public Use
  Company Number: CA-ACTELION-A-NJ2020-201453

PATIENT
  Age: 32 Year
  Sex: Female
  Weight: 52.15 kg

DRUGS (16)
  1. TADALAFIL. [Concomitant]
     Active Substance: TADALAFIL
  2. COTRIMOXAZOLE [Concomitant]
     Active Substance: SULFAMETHOXAZOLE\TRIMETHOPRIM
  3. HYDROXYCHLOROQUINE [Concomitant]
     Active Substance: HYDROXYCHLOROQUINE
  4. HYDROMORPHONE [Concomitant]
     Active Substance: HYDROMORPHONE
  5. ZOPICLONE [Concomitant]
     Active Substance: ZOPICLONE
  6. CARIPUL [Suspect]
     Active Substance: EPOPROSTENOL
     Indication: PULMONARY ARTERIAL HYPERTENSION
     Dosage: 30000 NG/ML, CONT INFUS
     Route: 042
     Dates: start: 20200129
  7. ASA [Concomitant]
     Active Substance: ASPIRIN
  8. COLCHICINE. [Concomitant]
     Active Substance: COLCHICINE
  9. VITAMIN D [Concomitant]
     Active Substance: VITAMIN D NOS
  10. ENOXAPARIN [Concomitant]
     Active Substance: ENOXAPARIN
  11. GRAVOL [Concomitant]
     Active Substance: DIMENHYDRINATE
  12. ONDANSETRON [Concomitant]
     Active Substance: ONDANSETRON
  13. PANTOPRAZOLE [Concomitant]
     Active Substance: PANTOPRAZOLE
  14. PREDNISONE. [Concomitant]
     Active Substance: PREDNISONE
  15. DIGOXIN. [Concomitant]
     Active Substance: DIGOXIN
  16. CALCIUM [Concomitant]
     Active Substance: CALCIUM

REACTIONS (6)
  - Pyrexia [Not Recovered/Not Resolved]
  - Cough [Not Recovered/Not Resolved]
  - Device dislocation [Unknown]
  - Catheter management [Recovered/Resolved]
  - Influenza [Unknown]
  - Pericarditis [Unknown]

NARRATIVE: CASE EVENT DATE: 20200129
